FAERS Safety Report 7643158-3 (Version None)
Quarter: 2011Q3

REPORT INFORMATION
  Report Type: 
  Country: None (occurrence: None)
  Receive Date: 20110729
  Receipt Date: 20110720
  Transmission Date: 20111222
  Serious: Yes (Hospitalization)
  Sender: FDA-Public Use
  Company Number: US-BIOGENIDEC-2007BI018703

PATIENT
  Age: 47 Year
  Sex: Female
  Weight: 108 kg

DRUGS (4)
  1. AVONEX [Suspect]
     Route: 030
     Dates: start: 20030801, end: 20100401
  2. HEPARIN [Concomitant]
     Indication: BEDRIDDEN
  3. AVONEX [Suspect]
     Indication: MULTIPLE SCLEROSIS
     Route: 030
     Dates: start: 19971001, end: 20030801
  4. NEURONTIN [Concomitant]
     Indication: MULTIPLE SCLEROSIS

REACTIONS (9)
  - INJECTION SITE PAIN [None]
  - PAIN IN EXTREMITY [None]
  - MASS [None]
  - LIMB INJURY [None]
  - PAIN [None]
  - NERVE INJURY [None]
  - MUSCLE RUPTURE [None]
  - OEDEMA PERIPHERAL [None]
  - ALLODYNIA [None]
